FAERS Safety Report 10333125 (Version 1)
Quarter: 2014Q3

REPORT INFORMATION
  Report Type: Spontaneous
  Country: US (occurrence: US)
  Receive Date: 20140722
  Receipt Date: 20140722
  Transmission Date: 20150326
  Serious: No
  Sender: FDA-Public Use
  Company Number: US-SA-2014SA004741

PATIENT
  Sex: Female

DRUGS (3)
  1. SUMATRIPTAN [Concomitant]
     Active Substance: SUMATRIPTAN
  2. AMBIEN CR [Suspect]
     Active Substance: ZOLPIDEM TARTRATE
     Route: 065
  3. WELLBUTRIN [Concomitant]
     Active Substance: BUPROPION HYDROCHLORIDE

REACTIONS (1)
  - Drug ineffective [Unknown]
